FAERS Safety Report 10874113 (Version 5)
Quarter: 2015Q2

REPORT INFORMATION
  Report Type: Spontaneous
  Country: IT (occurrence: IT)
  Receive Date: 20150227
  Receipt Date: 20150629
  Transmission Date: 20150821
  Serious: Yes (Hospitalization)
  Sender: FDA-Public Use
  Company Number: IT-PFIZER INC-2015070001

PATIENT
  Age: 31 Year
  Sex: Female

DRUGS (2)
  1. DAPAROX /00830802/ [Suspect]
     Active Substance: PAROXETINE HYDROCHLORIDE
     Dosage: 612.35 MG, SINGLE
     Route: 048
     Dates: start: 20150101, end: 20150101
  2. ALPRAZOLAM. [Suspect]
     Active Substance: ALPRAZOLAM
     Dosage: 75 MG, SINGLE
     Route: 048
     Dates: start: 20150101, end: 20150101

REACTIONS (4)
  - Intentional self-injury [Unknown]
  - Drug abuse [Unknown]
  - Intentional overdose [Unknown]
  - Sopor [Unknown]

NARRATIVE: CASE EVENT DATE: 20150101
